FAERS Safety Report 11863598 (Version 13)
Quarter: 2017Q1

REPORT INFORMATION
  Report Type: Report from Study
  Country: CA (occurrence: CA)
  Receive Date: 20151223
  Receipt Date: 20170322
  Transmission Date: 20170428
  Serious: Yes (Other)
  Sender: FDA-Public Use
  Company Number: PHHY2012CA061459

PATIENT
  Age: 66 Year
  Sex: Male

DRUGS (6)
  1. SANDOSTATIN LAR DEPOT [Suspect]
     Active Substance: OCTREOTIDE ACETATE
     Dosage: 30 MG, QMO (EVERY 4 WEEKS)
     Route: 030
     Dates: start: 20130625
  2. LASIX [Concomitant]
     Active Substance: FUROSEMIDE
     Indication: PERIPHERAL SWELLING
     Dosage: 20 MG, QD
     Route: 065
  3. LASIX [Concomitant]
     Active Substance: FUROSEMIDE
     Dosage: 30 MG, QD
     Route: 065
  4. SANDOSTATIN LAR DEPOT [Suspect]
     Active Substance: OCTREOTIDE ACETATE
     Indication: METASTATIC CARCINOID TUMOUR
     Dosage: 30 MG, QMO (EVERY 4 WEEKS)
     Route: 030
     Dates: start: 20100201
  5. LIPITOR [Concomitant]
     Active Substance: ATORVASTATIN CALCIUM
     Indication: PRODUCT USED FOR UNKNOWN INDICATION
     Route: 065
  6. EFFEXOR [Concomitant]
     Active Substance: VENLAFAXINE HYDROCHLORIDE
     Indication: PRODUCT USED FOR UNKNOWN INDICATION
     Route: 065

REACTIONS (28)
  - Tooth abscess [Unknown]
  - Blood pressure systolic increased [Not Recovered/Not Resolved]
  - Oedema peripheral [Unknown]
  - Fatigue [Unknown]
  - Needle issue [Unknown]
  - Epigastric discomfort [Unknown]
  - Fall [Unknown]
  - Stress [Unknown]
  - Body temperature decreased [Unknown]
  - Face injury [Unknown]
  - Tooth fracture [Unknown]
  - Joint swelling [Unknown]
  - Arthralgia [Unknown]
  - Injection site erythema [Unknown]
  - Toothache [Unknown]
  - Scratch [Unknown]
  - Insomnia [Unknown]
  - Injection site mass [Unknown]
  - Injection site pain [Unknown]
  - Malignant neoplasm progression [Unknown]
  - Underdose [Unknown]
  - Poor venous access [Unknown]
  - Skin abrasion [Unknown]
  - Peripheral swelling [Recovering/Resolving]
  - Neuroendocrine tumour [Unknown]
  - Blood pressure increased [Unknown]
  - Injection site bruising [Not Recovered/Not Resolved]
  - Second primary malignancy [Unknown]

NARRATIVE: CASE EVENT DATE: 20120711
